FAERS Safety Report 26165508 (Version 1)
Quarter: 2025Q4

REPORT INFORMATION
  Report Type: Spontaneous
  Country: KR (occurrence: KR)
  Receive Date: 20251216
  Receipt Date: 20251216
  Transmission Date: 20260117
  Serious: Yes (Other)
  Sender: ALEXION PHARMACEUTICALS
  Company Number: KR-ASTRAZENECA-202512ASI009571KR

PATIENT
  Sex: Female

DRUGS (15)
  1. TAGRISSO [Suspect]
     Active Substance: OSIMERTINIB
     Indication: Lung adenocarcinoma
     Dosage: 80 MILLIGRAM
     Route: 065
  2. TAGRISSO [Suspect]
     Active Substance: OSIMERTINIB
     Indication: EGFR gene mutation
     Dosage: 80 MILLIGRAM
     Route: 065
     Dates: start: 20250717, end: 20250806
  3. TAGRISSO [Suspect]
     Active Substance: OSIMERTINIB
     Indication: Gene mutation
     Dosage: 40 MILLIGRAM
     Route: 065
  4. TAGRISSO [Suspect]
     Active Substance: OSIMERTINIB
     Dosage: 40 MILLIGRAM
     Route: 065
     Dates: start: 20250903, end: 20250912
  5. TAGRISSO [Suspect]
     Active Substance: OSIMERTINIB
     Dosage: 40 MILLIGRAM, QOD
     Route: 065
     Dates: start: 20251001
  6. TAGRISSO [Suspect]
     Active Substance: OSIMERTINIB
     Dosage: 40 MILLIGRAM, QOD
     Route: 065
     Dates: start: 20251016, end: 20251029
  7. PEMETREXED [Suspect]
     Active Substance: PEMETREXED
     Indication: Lung adenocarcinoma
     Dosage: UNK
     Route: 065
  8. PEMETREXED [Suspect]
     Active Substance: PEMETREXED
     Indication: EGFR gene mutation
     Dosage: UNK
     Route: 065
  9. PEMETREXED [Suspect]
     Active Substance: PEMETREXED
     Indication: Gene mutation
     Dosage: UNK
     Route: 065
  10. PEMETREXED [Suspect]
     Active Substance: PEMETREXED
     Dosage: UNK
     Route: 065
  11. PEMETREXED [Suspect]
     Active Substance: PEMETREXED
     Dosage: UNK
     Route: 065
  12. CARBOPLATIN [Suspect]
     Active Substance: CARBOPLATIN
     Indication: Lung adenocarcinoma
     Dosage: UNK
     Route: 065
  13. CARBOPLATIN [Suspect]
     Active Substance: CARBOPLATIN
     Indication: EGFR gene mutation
     Dosage: UNK
     Route: 065
  14. CARBOPLATIN [Suspect]
     Active Substance: CARBOPLATIN
     Indication: Gene mutation
     Dosage: UNK
     Route: 065
  15. CARBOPLATIN [Suspect]
     Active Substance: CARBOPLATIN
     Dosage: UNK
     Route: 065

REACTIONS (3)
  - Pulmonary embolism [Unknown]
  - Deep vein thrombosis [Unknown]
  - Haematology test abnormal [Unknown]
